FAERS Safety Report 10255581 (Version 1)
Quarter: 2014Q2

REPORT INFORMATION
  Report Type: Spontaneous
  Country: IT (occurrence: None)
  Receive Date: 20140620
  Receipt Date: 20140620
  Transmission Date: 20141212
  Serious: Yes (Hospitalization)
  Sender: FDA-Public Use
  Company Number: AUR-APL-2014-06469

PATIENT
  Age: 72 Year
  Sex: Female

DRUGS (3)
  1. CITALOPRAM [Suspect]
     Indication: DEPRESSION
     Route: 048
     Dates: start: 20140509, end: 20140529
  2. MODURETIC [Suspect]
     Indication: HYPERTENSION
     Route: 048
     Dates: start: 20140101, end: 20140529
  3. XANAX (ALPRAZOLAM) [Concomitant]

REACTIONS (2)
  - Hyponatraemia [None]
  - Drug interaction [None]
